FAERS Safety Report 6649668-X (Version None)
Quarter: 2010Q1

REPORT INFORMATION
  Report Type: 
  Country: None (occurrence: None)
  Receive Date: 20100324
  Receipt Date: 20090501
  Transmission Date: 20100710
  Serious: Yes (Other)
  Sender: FDA-Public Use
  Company Number: US-AMGEN-QUU345233

PATIENT
  Sex: Female

DRUGS (3)
  1. NEULASTA [Suspect]
     Indication: CHEMOTHERAPY
     Route: 065
     Dates: start: 20090425
  2. DOCETAXEL [Concomitant]
     Dates: start: 20090424
  3. CYCLOPHOSPHAMIDE [Concomitant]
     Dates: start: 20090424

REACTIONS (1)
  - BONE PAIN [None]
